FAERS Safety Report 10924690 (Version 2)
Quarter: 2015Q2

REPORT INFORMATION
  Report Type: Spontaneous
  Country: US (occurrence: US)
  Receive Date: 20150318
  Receipt Date: 20150524
  Transmission Date: 20150821
  Serious: No
  Sender: FDA-Public Use
  Company Number: US-JNJFOC-20121008038

PATIENT
  Age: 59 Year
  Sex: Male

DRUGS (2)
  1. NIZORAL A-D [Suspect]
     Active Substance: KETOCONAZOLE
     Indication: DANDRUFF
     Dosage: 2 -3 TIMES A WEEK
     Route: 061
     Dates: start: 20021012
  2. NIZORAL A-D [Suspect]
     Active Substance: KETOCONAZOLE
     Indication: ACCIDENTAL EXPOSURE TO PRODUCT
     Dosage: 2 -3 TIMES A WEEK
     Route: 061
     Dates: start: 20021012

REACTIONS (2)
  - Eye irritation [Recovered/Resolved]
  - Accidental exposure to product [Not Recovered/Not Resolved]

NARRATIVE: CASE EVENT DATE: 20121012
